FAERS Safety Report 5016773-3 (Version None)
Quarter: 2006Q2

REPORT INFORMATION
  Report Type: 
  Country: None (occurrence: None)
  Receive Date: 20060602
  Receipt Date: 20060427
  Transmission Date: 20061013
  Serious: Yes (Hospitalization, Disabling, Other)
  Sender: FDA-Public Use
  Company Number: DE-SANOFI-SYNTHELABO-A04200600505

PATIENT
  Sex: Female
  Weight: 83 kg

DRUGS (3)
  1. ELOXATIN [Suspect]
     Indication: COLON CANCER
     Route: 041
     Dates: start: 20060427, end: 20060427
  2. TAVEGIL [Concomitant]
     Indication: PREMEDICATION
     Dosage: UNK
     Route: 042
     Dates: start: 20060427, end: 20060427
  3. SOLU-DECORTIN [Concomitant]
     Indication: PREMEDICATION
     Route: 042
     Dates: start: 20060427, end: 20060427

REACTIONS (3)
  - BACK PAIN [None]
  - COOMBS TEST POSITIVE [None]
  - RENAL FAILURE [None]
